FAERS Safety Report 9563151 (Version 1)
Quarter: 2013Q3

REPORT INFORMATION
  Report Type: Spontaneous
  Country: US (occurrence: US)
  Receive Date: 20130927
  Receipt Date: 20130927
  Transmission Date: 20140515
  Serious: No
  Sender: FDA-Public Use
  Company Number: US-BRISTOL-MYERS SQUIBB COMPANY-17449109

PATIENT
  Sex: 0

DRUGS (3)
  1. ONGLYZA TABS [Suspect]
  2. JANUVIA [Suspect]
  3. TRADJENTA [Suspect]

REACTIONS (1)
  - Hot flush [Unknown]
